FAERS Safety Report 4366445-3 (Version None)
Quarter: 2004Q2

REPORT INFORMATION
  Report Type: 
  Country: None (occurrence: None)
  Receive Date: 20040527
  Receipt Date: 20040330
  Transmission Date: 20050107
  Serious: No
  Sender: FDA-Public Use
  Company Number: US-BRISTOL-MYERS SQUIBB COMPANY-12546107

PATIENT
  Age: 46 Year
  Sex: Male
  Weight: 94 kg

DRUGS (2)
  1. ERBITUX [Suspect]
     Indication: COLON CANCER
     Dosage: SECOND INFUSION 548 MG ON 22-MAR-2004.
     Route: 042
     Dates: start: 20040316, end: 20040316
  2. BENADRYL [Concomitant]
     Indication: PREMEDICATION
     Dosage: ALSO ADMINISTERED ON 22-MAR-2004.
     Route: 042
     Dates: start: 20040316, end: 20040316

REACTIONS (3)
  - CHILLS [None]
  - DERMATITIS ACNEIFORM [None]
  - PYREXIA [None]
